FAERS Safety Report 25039780 (Version 1)
Quarter: 2025Q1

REPORT INFORMATION
  Report Type: Report from Study
  Country: US (occurrence: US)
  Receive Date: 20250305
  Receipt Date: 20250305
  Transmission Date: 20250409
  Serious: Yes (Other)
  Sender: TAKEDA
  Company Number: US-TAKEDA-2025TUS022330

PATIENT
  Age: 76 Year
  Sex: Female

DRUGS (1)
  1. VEDOLIZUMAB [Suspect]
     Active Substance: VEDOLIZUMAB
     Indication: Colitis ulcerative

REACTIONS (3)
  - Neuropathy peripheral [Not Recovered/Not Resolved]
  - Balance disorder [Not Recovered/Not Resolved]
  - Arthralgia [Not Recovered/Not Resolved]
